FAERS Safety Report 6574642-1 (Version None)
Quarter: 2010Q1

REPORT INFORMATION
  Report Type: 
  Country: None (occurrence: None)
  Receive Date: 20100201
  Receipt Date: 20100120
  Transmission Date: 20100710
  Serious: Yes (Hospitalization)
  Sender: FDA-Public Use
  Company Number: 2009SP035049

PATIENT
  Age: 35 Year
  Sex: Male

DRUGS (12)
  1. REFLEX (MIRTAZAPINE /01293201/) [Suspect]
     Indication: OBSESSIVE-COMPULSIVE DISORDER
     Dosage: 15 MG;QD;PO; 30 MG;QD;PO
     Route: 048
     Dates: start: 20090916, end: 20091013
  2. REFLEX (MIRTAZAPINE /01293201/) [Suspect]
     Indication: OBSESSIVE-COMPULSIVE DISORDER
     Dosage: 15 MG;QD;PO; 30 MG;QD;PO
     Route: 048
     Dates: start: 20091014, end: 20091023
  3. FLUVOXAMINE MALEATE [Suspect]
     Indication: DEPRESSION
     Dosage: 150 MG;QD;PO; 200 MG;QD;PO; 300 MG;QD;PO; 200 MG;QD;PO; 300 MG;QD;PO
     Route: 048
     Dates: start: 20081210, end: 20081217
  4. FLUVOXAMINE MALEATE [Suspect]
     Indication: DEPRESSION
     Dosage: 150 MG;QD;PO; 200 MG;QD;PO; 300 MG;QD;PO; 200 MG;QD;PO; 300 MG;QD;PO
     Route: 048
     Dates: start: 20081217, end: 20090107
  5. FLUVOXAMINE MALEATE [Suspect]
     Indication: DEPRESSION
     Dosage: 150 MG;QD;PO; 200 MG;QD;PO; 300 MG;QD;PO; 200 MG;QD;PO; 300 MG;QD;PO
     Route: 048
     Dates: start: 20090107, end: 20090930
  6. FLUVOXAMINE MALEATE [Suspect]
     Indication: DEPRESSION
     Dosage: 150 MG;QD;PO; 200 MG;QD;PO; 300 MG;QD;PO; 200 MG;QD;PO; 300 MG;QD;PO
     Route: 048
     Dates: start: 20090930, end: 20091014
  7. FLUVOXAMINE MALEATE [Suspect]
     Indication: DEPRESSION
     Dosage: 150 MG;QD;PO; 200 MG;QD;PO; 300 MG;QD;PO; 200 MG;QD;PO; 300 MG;QD;PO
     Route: 048
     Dates: start: 20091014, end: 20091023
  8. FLUNITRAZEPAM (FLUNITRAZEPAM) [Suspect]
     Indication: INSOMNIA
     Dosage: 2 MG;QD;PO; 1.5 MG;QD;PO; 2 MG;QD;PO
     Route: 048
     Dates: start: 20081210, end: 20090714
  9. FLUNITRAZEPAM (FLUNITRAZEPAM) [Suspect]
     Indication: INSOMNIA
     Dosage: 2 MG;QD;PO; 1.5 MG;QD;PO; 2 MG;QD;PO
     Route: 048
     Dates: start: 20090819, end: 20090901
  10. FLUNITRAZEPAM (FLUNITRAZEPAM) [Suspect]
     Indication: INSOMNIA
     Dosage: 2 MG;QD;PO; 1.5 MG;QD;PO; 2 MG;QD;PO
     Route: 048
     Dates: start: 20090909, end: 20091022
  11. CLONAZEPAM [Concomitant]
  12. ZOTEPINE [Concomitant]

REACTIONS (4)
  - DEPRESSION [None]
  - DRUG INTERACTION [None]
  - INSOMNIA [None]
  - STATUS EPILEPTICUS [None]
